FAERS Safety Report 7419335-3 (Version None)
Quarter: 2011Q2

REPORT INFORMATION
  Report Type: 
  Country: None (occurrence: None)
  Receive Date: 20110415
  Receipt Date: 20110406
  Transmission Date: 20111010
  Serious: Yes (Hospitalization)
  Sender: FDA-Public Use
  Company Number: US-ASTRAZENECA-2011SE12174

PATIENT
  Age: 37 Year
  Sex: Female

DRUGS (1)
  1. NEXIUM [Suspect]
     Indication: GASTROOESOPHAGEAL REFLUX DISEASE
     Route: 048

REACTIONS (6)
  - GASTRIC DISORDER [None]
  - POLYP [None]
  - GASTRIC ULCER [None]
  - DRUG DOSE OMISSION [None]
  - DUODENAL ULCER [None]
  - DIVERTICULITIS [None]
